FAERS Safety Report 16249432 (Version 1)
Quarter: 2019Q2

REPORT INFORMATION
  Report Type: Spontaneous
  Country: DK (occurrence: DK)
  Receive Date: 20190429
  Receipt Date: 20190429
  Transmission Date: 20190711
  Serious: Yes (Hospitalization, Other)
  Sender: FDA-Public Use
  Company Number: DK-AUROBINDO-AUR-APL-2019-022818

PATIENT

DRUGS (5)
  1. ALENDRONIC ACID TABLETS [Suspect]
     Active Substance: ALENDRONIC ACID
     Indication: OSTEOPOROSIS
     Dosage: 70 MILLIGRAM, EVERY WEEK
     Route: 048
     Dates: start: 2008
  2. PARACETAMOL [Concomitant]
     Active Substance: ACETAMINOPHEN
     Indication: PAIN
     Dosage: 1000 MILLIGRAM, AS NECESSARY
     Route: 048
     Dates: start: 20160314
  3. SIMVASTATIN. [Concomitant]
     Active Substance: SIMVASTATIN
     Indication: HYPERCHOLESTEROLAEMIA
     Dosage: 40 MILLIGRAM, ONCE A DAY
     Route: 048
  4. BUDENOFALK [Concomitant]
     Active Substance: BUDESONIDE
     Indication: INFLAMMATION
     Dosage: 9 MILLIGRAM, ONCE A DAY
     Route: 048
     Dates: start: 20180919, end: 20190218
  5. CLOPIDOGREL [Concomitant]
     Active Substance: CLOPIDOGREL BISULFATE
     Indication: THROMBOSIS PROPHYLAXIS
     Dosage: 75 MILLIGRAM, ONCE A DAY
     Route: 048

REACTIONS (4)
  - Osteonecrosis of jaw [Not Recovered/Not Resolved]
  - Impaired healing [Unknown]
  - Sequestrectomy [Recovered/Resolved]
  - Exposed bone in jaw [Unknown]

NARRATIVE: CASE EVENT DATE: 2018
